FAERS Safety Report 14297070 (Version 1)
Quarter: 2017Q4

REPORT INFORMATION
  Report Type: Spontaneous
  Country: IT (occurrence: IT)
  Receive Date: 20171218
  Receipt Date: 20171218
  Transmission Date: 20180321
  Serious: Yes (Hospitalization, Other)
  Sender: FDA-Public Use
  Company Number: IT-PFIZER INC-2017532144

PATIENT
  Age: 6 Year
  Sex: Female

DRUGS (26)
  1. ACICLOVIR [Concomitant]
     Active Substance: ACYCLOVIR
     Dosage: 1350 MG, 1X/DAY
     Dates: start: 20161219
  2. URBASON /00049601/ [Concomitant]
     Active Substance: METHYLPREDNISOLONE
     Dosage: 24 MG, 1X/DAY
     Dates: start: 20161220, end: 20161221
  3. TRIMETON [Concomitant]
     Active Substance: CHLORPHENIRAMINE MALEATE
     Dosage: 10 MG, 1X/DAY
     Dates: start: 20161220, end: 20161221
  4. DELTACORTENE [Concomitant]
     Active Substance: PREDNISONE
     Dates: start: 20161213, end: 20161220
  5. SANDIMMUN [Concomitant]
     Active Substance: CYCLOSPORINE
     Dosage: 72 MG, 1X/DAY
     Dates: start: 20161220
  6. NYSTATIN. [Concomitant]
     Active Substance: NYSTATIN
     Dosage: 15 ML, 1X/DAY
     Route: 048
     Dates: start: 20161212, end: 20170120
  7. LEDERFOLIN [Concomitant]
     Active Substance: LEUCOVORIN CALCIUM
     Dosage: 4.4 MG, 1X/DAY
     Dates: start: 20161224, end: 20161230
  8. HEPARIN SODIUM. [Concomitant]
     Active Substance: HEPARIN SODIUM
     Dosage: 2370 KIU, 1X/DAY
     Dates: start: 20161213
  9. BACTRIM [Concomitant]
     Active Substance: SULFAMETHOXAZOLE\TRIMETHOPRIM
     Dosage: 10 ML, 2X/DAY
     Dates: start: 20161218
  10. IMMUNOGLOBULIN ANTI HUMAN T-LYMPHOCYTE [Suspect]
     Active Substance: THYMOCYTE IMMUNE GLOBULIN NOS
     Indication: ALLOGENIC BONE MARROW TRANSPLANTATION THERAPY
     Dosage: 63 MG, 1X/DAY
     Route: 042
     Dates: start: 20161220, end: 20161221
  11. DIAMINOCILLINA [Concomitant]
     Active Substance: PENICILLIN G BENZATHINE
     Dosage: 600000 MILLION IU, UNK
     Dates: start: 20161213
  12. PERFALGAN [Concomitant]
     Active Substance: ACETAMINOPHEN
     Dosage: 375 MG, 1X/DAY
     Dates: start: 20161220, end: 20161221
  13. URSODEOXYCHOLIC ACID [Concomitant]
     Active Substance: URSODIOL
     Dosage: 240 MG, 1X/DAY
     Dates: start: 20161212, end: 20161220
  14. CIPROFLOXACIN. [Concomitant]
     Active Substance: CIPROFLOXACIN
     Dosage: 500 MG, 1X/DAY
     Route: 042
     Dates: start: 20161212, end: 20161229
  15. LASIX [Concomitant]
     Active Substance: FUROSEMIDE
     Dosage: 48 MG, 1X/DAY
     Dates: start: 20161213
  16. EMEND [Concomitant]
     Active Substance: APREPITANT
     Dosage: UNK
     Dates: start: 20161214, end: 20161216
  17. RANITIDINE. [Concomitant]
     Active Substance: RANITIDINE
     Dosage: 100 MG, 1X/DAY
     Dates: start: 20161213
  18. ALKERAN [Suspect]
     Active Substance: MELPHALAN
     Indication: ALLOGENIC BONE MARROW TRANSPLANTATION THERAPY
     Dosage: 123 MG, SINGLE (TOTAL)
     Route: 042
     Dates: start: 20161220, end: 20161220
  19. ENDOXAN-BAXTER [Suspect]
     Active Substance: CYCLOPHOSPHAMIDE
     Indication: ALLOGENIC BONE MARROW TRANSPLANTATION THERAPY
     Dosage: 1420 MG, 1X/DAY
     Dates: start: 20161218, end: 20161219
  20. ALOXI [Concomitant]
     Active Substance: PALONOSETRON HYDROCHLORIDE
     Dosage: 120 MG, AS NEEDED
     Dates: start: 20161214, end: 20161217
  21. METHOTREXATE SODIUM. [Suspect]
     Active Substance: METHOTREXATE SODIUM
     Indication: ALLOGENIC BONE MARROW TRANSPLANTATION THERAPY
     Dosage: 8.8 MG, CYCLIC
     Route: 042
     Dates: start: 20161223, end: 20161228
  22. BUSILVEX [Suspect]
     Active Substance: BUSULFAN
     Indication: ALLOGENIC BONE MARROW TRANSPLANTATION THERAPY
     Dosage: 90 MG, 1X/DAY
     Route: 042
     Dates: start: 20161214, end: 20161217
  23. PRIVIGEN [Concomitant]
     Active Substance: HUMAN IMMUNOGLOBULIN G
     Dosage: 10 G, AS NEEDED
     Dates: start: 20161217, end: 20170109
  24. ACICLOVIR [Concomitant]
     Active Substance: ACYCLOVIR
     Dosage: 1800 MG, 1X/DAY
     Dates: start: 20161212, end: 20161218
  25. ITRACONAZOLE. [Concomitant]
     Active Substance: ITRACONAZOLE
     Dosage: 120 MG, 1X/DAY
     Route: 048
     Dates: start: 20161212, end: 20161229
  26. TEGRETOL [Concomitant]
     Active Substance: CARBAMAZEPINE
     Dosage: 240 MG, AS NEEDED
     Dates: start: 20161213, end: 20161218

REACTIONS (1)
  - Petechiae [Recovered/Resolved]

NARRATIVE: CASE EVENT DATE: 20161225
